FAERS Safety Report 8548439-7 (Version None)
Quarter: 2012Q3

REPORT INFORMATION
  Report Type: 
  Country: None (occurrence: None)
  Receive Date: 20120717
  Receipt Date: 20120704
  Transmission Date: 20120928
  Serious: Yes (Hospitalization)
  Sender: FDA-Public Use
  Company Number: LU-SEPTODONT-201200684

PATIENT
  Age: 60 Year
  Sex: Female

DRUGS (1)
  1. SCANDONEST PLAIN [Suspect]
     Indication: LOCAL ANAESTHESIA
     Dosage: DENTAL
     Route: 004
     Dates: start: 20120321, end: 20120321

REACTIONS (7)
  - AMNESIA [None]
  - CHEST DISCOMFORT [None]
  - PULSE PRESSURE DECREASED [None]
  - DYSPNOEA [None]
  - MALAISE [None]
  - PARAESTHESIA [None]
  - CONFUSIONAL STATE [None]
